FAERS Safety Report 5580786-3 (Version None)
Quarter: 2007Q4

REPORT INFORMATION
  Report Type: 
  Country: None (occurrence: None)
  Receive Date: 20071130
  Receipt Date: 20070712
  Transmission Date: 20080405
  Serious: No
  Sender: FDA-Public Use
  Company Number: US200707003299

PATIENT
  Age: 67 Year
  Sex: Male

DRUGS (5)
  1. BYETTA [Suspect]
     Indication: TYPE 2 DIABETES MELLITUS
     Dosage: 5 UG, 2/D, SUBCUTANEOUS ; 10 UG, 2/D, SUBCUTANEOUS ; 5 UG, 2/D, SUBCUTANEOUS ; 10 UG
     Route: 058
     Dates: start: 20070101, end: 20070101
  2. BYETTA [Suspect]
     Indication: TYPE 2 DIABETES MELLITUS
     Dosage: 5 UG, 2/D, SUBCUTANEOUS ; 10 UG, 2/D, SUBCUTANEOUS ; 5 UG, 2/D, SUBCUTANEOUS ; 10 UG
     Route: 058
     Dates: start: 20070701, end: 20070701
  3. BYETTA [Suspect]
     Indication: TYPE 2 DIABETES MELLITUS
     Dosage: 5 UG, 2/D, SUBCUTANEOUS ; 10 UG, 2/D, SUBCUTANEOUS ; 5 UG, 2/D, SUBCUTANEOUS ; 10 UG
     Route: 058
     Dates: start: 20060101
  4. GLIPIZIDE [Concomitant]
  5. METFORMIN HCL [Concomitant]

REACTIONS (10)
  - ABDOMINAL PAIN UPPER [None]
  - BLOOD GLUCOSE INCREASED [None]
  - DARK CIRCLES UNDER EYES [None]
  - DIARRHOEA [None]
  - DRUG EFFECT DECREASED [None]
  - FATIGUE [None]
  - INSOMNIA [None]
  - NAUSEA [None]
  - RESTLESSNESS [None]
  - VOMITING [None]
